FAERS Safety Report 22237846 (Version 1)
Quarter: 2023Q2

REPORT INFORMATION
  Report Type: Spontaneous
  Country: US (occurrence: US)
  Receive Date: 20230421
  Receipt Date: 20230421
  Transmission Date: 20230722
  Serious: No
  Sender: FDA-Public Use
  Company Number: US-COSETTE-CP2023US000068

PATIENT
  Age: 40 Year
  Sex: Male
  Weight: 150 kg

DRUGS (2)
  1. CLOMIPHENE CITRATE [Suspect]
     Active Substance: CLOMIPHENE CITRATE
     Indication: Product use in unapproved indication
     Route: 048
     Dates: start: 2023
  2. MESALAMINE [Concomitant]
     Active Substance: MESALAMINE
     Indication: Colitis
     Route: 065

REACTIONS (4)
  - Product dose omission issue [Unknown]
  - Product use issue [Unknown]
  - Product availability issue [Unknown]
  - Product use in unapproved indication [Unknown]

NARRATIVE: CASE EVENT DATE: 20230101
